FAERS Safety Report 16891953 (Version 1)
Quarter: 2019Q4

REPORT INFORMATION
  Report Type: Spontaneous
  Country: GB (occurrence: FI)
  Receive Date: 20191007
  Receipt Date: 20191007
  Transmission Date: 20200122
  Serious: Yes (Disabling)
  Sender: FDA-Public Use
  Company Number: FI-BAYER-2019-179789

PATIENT
  Age: 47 Year
  Sex: Female

DRUGS (4)
  1. ESOMEPRAZOLE. [Concomitant]
     Active Substance: ESOMEPRAZOLE MAGNESIUM
     Dosage: UNK
  2. AMORION [Concomitant]
     Active Substance: AMOXICILLIN
     Dosage: UNK
  3. CIPROXIN 500 MG [Suspect]
     Active Substance: CIPROFLOXACIN
     Indication: URINARY TRACT INFECTION
     Dosage: 250 MG, QD
  4. TAVANIC [Suspect]
     Active Substance: LEVOFLOXACIN
     Indication: HELICOBACTER INFECTION

REACTIONS (10)
  - Trigger finger [Recovered/Resolved with Sequelae]
  - Parkinson^s disease [Recovered/Resolved with Sequelae]
  - Arthropathy [Recovered/Resolved with Sequelae]
  - Whipple^s disease [Recovered/Resolved with Sequelae]
  - Tendon sheath disorder [Recovered/Resolved with Sequelae]
  - Arthritis [Recovered/Resolved with Sequelae]
  - Rotator cuff syndrome [Recovered/Resolved with Sequelae]
  - Tendon disorder [Recovered/Resolved with Sequelae]
  - Diaphragmatic hernia [Recovered/Resolved with Sequelae]
  - Lyme disease [Recovered/Resolved with Sequelae]

NARRATIVE: CASE EVENT DATE: 2001
